FAERS Safety Report 16931451 (Version 1)
Quarter: 2019Q4

REPORT INFORMATION
  Report Type: Spontaneous
  Country: DO (occurrence: DO)
  Receive Date: 20191017
  Receipt Date: 20191017
  Transmission Date: 20200122
  Serious: Yes (Other)
  Sender: FDA-Public Use
  Company Number: DO-GLAXOSMITHKLINE-DO2019AMR183367

PATIENT
  Sex: Female

DRUGS (2)
  1. LAMICTAL [Suspect]
     Active Substance: LAMOTRIGINE
     Indication: EPILEPSY
     Dosage: UNK
     Dates: start: 20190715, end: 20190917
  2. VALPROIC ACID. [Suspect]
     Active Substance: VALPROIC ACID
     Indication: EPILEPSY
     Dosage: UNK

REACTIONS (5)
  - Tremor [Unknown]
  - Rash [Unknown]
  - Oral candidiasis [Unknown]
  - Immune system disorder [Unknown]
  - Dengue haemorrhagic fever [Unknown]
